FAERS Safety Report 8242290-3 (Version None)
Quarter: 2012Q1

REPORT INFORMATION
  Report Type: 
  Country: None (occurrence: None)
  Receive Date: 20120329
  Receipt Date: 20120322
  Transmission Date: 20120608
  Serious: No
  Sender: FDA-Public Use
  Company Number: US-PFIZER INC-2012075863

PATIENT
  Sex: Male
  Weight: 117.1 kg

DRUGS (7)
  1. EFFEXOR XR [Suspect]
     Dosage: 37.5 MG, 1X/DAY
  2. METFORMIN [Concomitant]
     Dosage: UNK
  3. LEVOTHYROXINE [Concomitant]
     Dosage: 175 UG, 1X/DAY
     Route: 048
  4. TRAMADOL [Concomitant]
     Dosage: UNK
  5. VENLAFAXINE HCL [Suspect]
     Dosage: UNK
  6. IBUPROFEN [Concomitant]
     Dosage: 600 MG, THREE TIMES DAILY AS NEEDED
     Route: 048
  7. LEVOTHYROXINE [Concomitant]
     Dosage: 25 UG, 3/4 TABLET 1X/DAY
     Route: 048

REACTIONS (4)
  - DEPRESSION [None]
  - WEIGHT INCREASED [None]
  - HYPERSENSITIVITY [None]
  - HEADACHE [None]
